FAERS Safety Report 4289448-6 (Version None)
Quarter: 2004Q1

REPORT INFORMATION
  Report Type: 
  Country: None (occurrence: None)
  Receive Date: 20040206
  Receipt Date: 20040206
  Transmission Date: 20041129
  Serious: No
  Sender: FDA-Public Use
  Company Number: None

PATIENT
  Age: 74 Year
  Sex: Female
  Weight: 96.3 kg

DRUGS (8)
  1. NATRECOR [Suspect]
     Indication: CARDIAC FAILURE CONGESTIVE
     Dosage: 2 MCG/KG BLOUS IV, 0.01 MCG/KG MIN IV
     Route: 042
     Dates: start: 20031203, end: 20031206
  2. CLONIDINE [Concomitant]
  3. ERYTHROPOETIN [Concomitant]
  4. CALCIUM CARBONATE [Concomitant]
  5. CARBONYL IRON [Concomitant]
  6. FLUCONATE [Concomitant]
  7. LEVOTHYROXINE SODIUM [Concomitant]
  8. ASCORBIC ACID [Concomitant]

REACTIONS (1)
  - RENAL FAILURE ACUTE [None]
